FAERS Safety Report 6979481-5 (Version None)
Quarter: 2010Q3

REPORT INFORMATION
  Report Type: 
  Country: None (occurrence: None)
  Receive Date: 20100910
  Receipt Date: 20100910
  Transmission Date: 20110219
  Serious: No
  Sender: FDA-Public Use
  Company Number: None

PATIENT
  Age: 20 Year
  Sex: Male
  Weight: 81.6475 kg

DRUGS (2)
  1. NUCYNTA [Suspect]
     Indication: SWELLING
     Dosage: 50 MG Q4 TO 6 HOURS ORAL
     Route: 048
     Dates: start: 20100825, end: 20100827
  2. NUCYNTA [Suspect]
     Indication: URTICARIA
     Dosage: 50 MG Q4 TO 6 HOURS ORAL
     Route: 048
     Dates: start: 20100825, end: 20100827

REACTIONS (4)
  - EYE SWELLING [None]
  - OEDEMA PERIPHERAL [None]
  - RASH [None]
  - URTICARIA [None]
